FAERS Safety Report 12652364 (Version 2)
Quarter: 2016Q3

REPORT INFORMATION
  Report Type: Spontaneous
  Country: DE (occurrence: DE)
  Receive Date: 20160815
  Receipt Date: 20160825
  Transmission Date: 20161109
  Serious: Yes (Other)
  Sender: FDA-Public Use
  Company Number: DE-BAYER-2016-155182

PATIENT
  Age: 50 Year
  Sex: Female

DRUGS (1)
  1. QLAIRA FILMTABLETTEN [Suspect]
     Active Substance: DIENOGEST\ESTRADIOL VALERATE
     Dosage: 1 DF, QD
     Route: 048
     Dates: start: 201209, end: 201606

REACTIONS (4)
  - Paraesthesia [None]
  - Acute disseminated encephalomyelitis [None]
  - Gait disturbance [None]
  - Dizziness [None]

NARRATIVE: CASE EVENT DATE: 2016
